FAERS Safety Report 7255369-X (Version None)
Quarter: 2011Q1

REPORT INFORMATION
  Report Type: 
  Country: None (occurrence: None)
  Receive Date: 20110129
  Receipt Date: 20100310
  Transmission Date: 20110831
  Serious: No
  Sender: FDA-Public Use
  Company Number: US-ABBOTT-10P-163-0632268-00

PATIENT
  Sex: Female

DRUGS (4)
  1. HUMIRA [Suspect]
     Indication: PRODUCT USED FOR UNKNOWN INDICATION
     Dates: start: 20081201, end: 20091001
  2. HUMIRA [Suspect]
     Dates: start: 20100201, end: 20100201
  3. BAKERS PNS SHAMPOO OTC [Concomitant]
     Route: 061
  4. TACLONEX [Concomitant]
     Indication: PSORIASIS
     Route: 061

REACTIONS (3)
  - HYPOAESTHESIA [None]
  - ANTINUCLEAR ANTIBODY INCREASED [None]
  - RAYNAUD'S PHENOMENON [None]
